FAERS Safety Report 24868864 (Version 1)
Quarter: 2025Q1

REPORT INFORMATION
  Report Type: Spontaneous
  Country: CN (occurrence: CN)
  Receive Date: 20250121
  Receipt Date: 20250121
  Transmission Date: 20250409
  Serious: Yes (Other)
  Sender: AMGEN
  Company Number: CN-AMGEN-CHNSP2025008125

PATIENT
  Age: 21 Year
  Sex: Female

DRUGS (14)
  1. BLINATUMOMAB [Suspect]
     Active Substance: BLINATUMOMAB
     Indication: B-cell type acute leukaemia
     Dosage: 28 MICROGRAM, QD
     Route: 040
  2. BLINATUMOMAB [Suspect]
     Active Substance: BLINATUMOMAB
     Indication: Gene mutation
  3. BLINATUMOMAB [Suspect]
     Active Substance: BLINATUMOMAB
     Indication: RUNX1 gene mutation
  4. VINDESINE [Concomitant]
     Active Substance: VINDESINE
     Indication: B-cell type acute leukaemia
     Route: 065
  5. IDARUBICIN [Concomitant]
     Active Substance: IDARUBICIN
     Indication: B-cell type acute leukaemia
     Route: 065
  6. CYCLOPHOSPHAMIDE [Concomitant]
     Active Substance: CYCLOPHOSPHAMIDE
     Indication: B-cell type acute leukaemia
     Route: 065
  7. CYCLOPHOSPHAMIDE [Concomitant]
     Active Substance: CYCLOPHOSPHAMIDE
     Dosage: 1.8 GRAM PER SQUARE METRE, QD
     Route: 040
  8. DEXAMETHASONE [Concomitant]
     Active Substance: DEXAMETHASONE
     Indication: B-cell type acute leukaemia
     Route: 065
  9. MERCAPTOPURINE [Concomitant]
     Active Substance: MERCAPTOPURINE
     Indication: B-cell type acute leukaemia
     Route: 065
  10. CYTARABINE [Concomitant]
     Active Substance: CYTARABINE
     Indication: B-cell type acute leukaemia
     Route: 065
  11. CYTARABINE [Concomitant]
     Active Substance: CYTARABINE
     Dosage: 4 GRAM PER SQUARE METRE, QD
     Route: 040
  12. PEGASPARGASE [Concomitant]
     Active Substance: PEGASPARGASE
     Indication: B-cell type acute leukaemia
     Route: 065
  13. BUSULFAN [Concomitant]
     Active Substance: BUSULFAN
     Indication: B-cell type acute leukaemia
     Dosage: 3.2 MILLIGRAM/KILOGRAM, QD
     Route: 040
  14. THYMOCYTE IMMUNE GLOBULIN NOS [Concomitant]
     Active Substance: THYMOCYTE IMMUNE GLOBULIN NOS
     Indication: B-cell type acute leukaemia
     Dosage: 6 MILLIGRAM/KILOGRAM, QD
     Route: 040

REACTIONS (4)
  - Acute graft versus host disease in skin [Recovered/Resolved]
  - Neutropenia [Unknown]
  - Interleukin level increased [Unknown]
  - Pyrexia [Unknown]
